FAERS Safety Report 7459232-0 (Version None)
Quarter: 2011Q2

REPORT INFORMATION
  Report Type: 
  Country: None (occurrence: None)
  Receive Date: 20110505
  Receipt Date: 20110420
  Transmission Date: 20111010
  Serious: Yes (Other)
  Sender: FDA-Public Use
  Company Number: ES-JNJFOC-20110410271

PATIENT
  Age: 48 Year
  Sex: Male

DRUGS (1)
  1. INVEGA [Suspect]
     Indication: BIPOLAR DISORDER
     Route: 065

REACTIONS (5)
  - INSOMNIA [None]
  - JOINT SWELLING [None]
  - PAIN [None]
  - DIZZINESS [None]
  - NERVOUSNESS [None]
